FAERS Safety Report 17541988 (Version 4)
Quarter: 2020Q2

REPORT INFORMATION
  Report Type: Spontaneous
  Country: US (occurrence: US)
  Receive Date: 20200313
  Receipt Date: 20200529
  Transmission Date: 20200713
  Serious: Yes (Other)
  Sender: FDA-Public Use
  Company Number: US-LEXICON PHARMACEUTICALS, INC-20-1606-00192

PATIENT
  Age: 61 Year
  Sex: Male

DRUGS (4)
  1. CREON [Concomitant]
     Active Substance: PANCRELIPASE AMYLASE\PANCRELIPASE LIPASE\PANCRELIPASE PROTEASE
  2. XERMELO [Suspect]
     Active Substance: TELOTRISTAT ETHYL
     Indication: CARCINOID TUMOUR
     Dates: start: 20200214
  3. OPIOID TINCTURE [Concomitant]
  4. SOMATULINE [Concomitant]
     Active Substance: LANREOTIDE ACETATE

REACTIONS (4)
  - Flatulence [Unknown]
  - Nausea [Unknown]
  - Disease progression [Unknown]
  - Abdominal pain [Recovered/Resolved]
